FAERS Safety Report 5079682-X (Version None)
Quarter: 2006Q3

REPORT INFORMATION
  Report Type: 
  Country: None (occurrence: None)
  Receive Date: 20060808
  Receipt Date: 20060724
  Transmission Date: 20061208
  Serious: Yes (Hospitalization)
  Sender: FDA-Public Use
  Company Number: US200604001975

PATIENT
  Age: 56 Year
  Sex: Male

DRUGS (1)
  1. ILETIN [Suspect]
     Indication: DIABETES MELLITUS

REACTIONS (2)
  - PANCREATIC CARCINOMA [None]
  - POOR QUALITY DRUG ADMINISTERED [None]
